FAERS Safety Report 14185717 (Version 1)
Quarter: 2017Q4

REPORT INFORMATION
  Report Type: Spontaneous
  Country: US (occurrence: None)
  Receive Date: 20171112
  Receipt Date: 20171112
  Transmission Date: 20180321
  Serious: No
  Sender: FDA-Public Use
  Company Number: None

PATIENT
  Age: 38 Year
  Sex: Female

DRUGS (1)
  1. COPAXONE [Suspect]
     Active Substance: GLATIRAMER ACETATE
     Indication: MULTIPLE SCLEROSIS
     Dosage: 40MG 3 TIMES PER WEEK SUB-Q
     Route: 058
     Dates: start: 20170801, end: 20170925

REACTIONS (1)
  - Lymphoma [None]

NARRATIVE: CASE EVENT DATE: 20170925
